FAERS Safety Report 4631135-6 (Version None)
Quarter: 2005Q2

REPORT INFORMATION
  Report Type: 
  Country: None (occurrence: None)
  Receive Date: 20050407
  Receipt Date: 20050407
  Transmission Date: 20051028
  Serious: Yes (Death)
  Sender: FDA-Public Use
  Company Number: None

PATIENT
  Age: 65 Year
  Sex: Female
  Weight: 61 kg

DRUGS (2)
  1. TENECTEPLASE [Suspect]
     Indication: MYOCARDIAL INFARCTION
     Dosage: 35MG
     Dates: start: 20030521, end: 20030521
  2. EPTIFIBATIDE [Suspect]
     Indication: MYOCARDIAL INFARCTION
     Dosage: 161.2MG
     Dates: start: 20030522, end: 20030522

REACTIONS (1)
  - CEREBELLAR HAEMORRHAGE [None]
